FAERS Safety Report 9386600 (Version 2)
Quarter: 2013Q3

REPORT INFORMATION
  Report Type: Report from Study
  Country: ZA (occurrence: ZA)
  Receive Date: 20130708
  Receipt Date: 20130808
  Transmission Date: 20140515
  Serious: Yes (Hospitalization)
  Sender: FDA-Public Use
  Company Number: PHHY2013ZA071659

PATIENT
  Age: 76 Year
  Sex: Female

DRUGS (3)
  1. ACLASTA [Suspect]
     Indication: OSTEOPOROSIS
     Dosage: 5MG/100ML ANNUALLY
     Route: 042
     Dates: start: 2010
  2. ACLASTA [Suspect]
     Dosage: 5MG/100ML ANNUALLY
     Route: 042
     Dates: start: 2011
  3. ACLASTA [Suspect]
     Dosage: 5MG/100ML ANNUALLY
     Route: 042
     Dates: start: 2012

REACTIONS (2)
  - Small intestinal obstruction [Recovering/Resolving]
  - Asthenia [Unknown]
